FAERS Safety Report 4503515-0 (Version None)
Quarter: 2004Q4

REPORT INFORMATION
  Report Type: 
  Country: None (occurrence: None)
  Receive Date: 20041115
  Receipt Date: 20041109
  Transmission Date: 20050328
  Serious: Yes (Life-Threatening, Hospitalization)
  Sender: FDA-Public Use
  Company Number: 200413032GDS

PATIENT
  Age: 64 Year
  Sex: Female
  Weight: 120 kg

DRUGS (12)
  1. CIPROFLOXACIN [Suspect]
     Indication: URINARY TRACT INFECTION
     Dosage: ORAL
     Route: 048
     Dates: start: 20040802, end: 20040803
  2. METFORMIN [Suspect]
     Indication: DIABETES MELLITUS
     Dosage: 850 MG, BID, ORAL
     Route: 048
     Dates: start: 20040601, end: 20040803
  3. IRBESARTAN - HYDROCHLOROTHIAZIDE [Suspect]
     Indication: HYPERTENSION
     Dosage: 300 MG, TOTAL DAILY, ORAL
     Route: 048
     Dates: start: 20040601
  4. NEXIUM [Suspect]
     Indication: INFECTION
  5. MOTILIUM [Suspect]
     Indication: INFECTION
  6. ASPIRIN [Concomitant]
  7. AMLODIPIN [Concomitant]
  8. ATORVASTATIN CALCIUM [Concomitant]
  9. INSULIN [Concomitant]
  10. GLUCOPHAGE [Concomitant]
  11. APROVEL [Concomitant]
  12. COAPROVEL [Concomitant]

REACTIONS (14)
  - BRONCHIAL OBSTRUCTION [None]
  - CARDIAC MURMUR [None]
  - CONDITION AGGRAVATED [None]
  - DIALYSIS [None]
  - DYSPNOEA [None]
  - FOETOR HEPATICUS [None]
  - GENERAL PHYSICAL HEALTH DETERIORATION [None]
  - HYPERKALAEMIA [None]
  - LACTIC ACIDOSIS [None]
  - NEPHRITIS INTERSTITIAL [None]
  - RENAL FAILURE ACUTE [None]
  - RENAL TUBULAR NECROSIS [None]
  - TACHYPNOEA [None]
  - TOOTH EXTRACTION [None]
